FAERS Safety Report 6907424-9 (Version None)
Quarter: 2010Q3

REPORT INFORMATION
  Report Type: 
  Country: None (occurrence: None)
  Receive Date: 20100716
  Receipt Date: 20100127
  Transmission Date: 20110219
  Serious: Yes (Other)
  Sender: FDA-Public Use
  Company Number: 2010EK000002

PATIENT
  Age: 62 Year
  Sex: Male
  Weight: 137.4399 kg

DRUGS (1)
  1. DEPODUR [Suspect]
     Indication: HIP ARTHROPLASTY
     Dosage: 15 MG;X1;ED
     Route: 008
     Dates: start: 20100126, end: 20100126

REACTIONS (2)
  - RESPIRATORY DISTRESS [None]
  - SLEEP APNOEA SYNDROME [None]
